FAERS Safety Report 6074877-0 (Version None)
Quarter: 2009Q1

REPORT INFORMATION
  Report Type: 
  Country: None (occurrence: None)
  Receive Date: 20090212
  Receipt Date: 20090206
  Transmission Date: 20090719
  Serious: Yes (Disabling)
  Sender: FDA-Public Use
  Company Number: GB-TEVA-185247ISR

PATIENT
  Sex: Female

DRUGS (1)
  1. PROPRANOLOL [Suspect]
     Indication: ANXIETY
     Route: 046
     Dates: start: 20090112

REACTIONS (3)
  - CONFUSIONAL STATE [None]
  - HYPOAESTHESIA [None]
  - RESTLESS LEGS SYNDROME [None]
